FAERS Safety Report 9547829 (Version 1)
Quarter: 2013Q3

REPORT INFORMATION
  Report Type: Spontaneous
  Country: US (occurrence: None)
  Receive Date: 20130728
  Receipt Date: 20130728
  Transmission Date: 20140515
  Serious: Yes (Other)
  Sender: FDA-Public Use
  Company Number: 394098

PATIENT
  Sex: 0

DRUGS (3)
  1. MEPIVACAINE HYDROCHLORIDE [Suspect]
     Indication: NERVE BLOCK
     Dosage: 10CC, ONCE, INTRASCALENE, UNKNOWN
  2. ROPIVACAINE [Suspect]
     Indication: NERVE BLOCK
     Dosage: 100, ONCE, INTRASCALENE, UNKNOWN
  3. DEXAMETHASONE [Suspect]
     Indication: NERVE BLOCK
     Dosage: 4MG, ONCE, INTRASSCALENE, UNKNOWN

REACTIONS (1)
  - Convulsion [None]
